FAERS Safety Report 19572092 (Version 2)
Quarter: 2021Q3

REPORT INFORMATION
  Report Type: Spontaneous
  Country: FR (occurrence: FR)
  Receive Date: 20210715
  Receipt Date: 20210831
  Transmission Date: 20211014
  Serious: Yes (Hospitalization)
  Sender: FDA-Public Use
  Company Number: FR-BAXTER-2021BAX020399

PATIENT
  Age: 73 Year
  Sex: Male
  Weight: 106 kg

DRUGS (14)
  1. NORADRENALINE MYLAN [Suspect]
     Active Substance: NOREPINEPHRINE\NOREPINEPHRINE BITARTRATE
     Indication: HYPOTENSION
     Dosage: 20MG,QD
     Route: 042
     Dates: start: 20210521, end: 20210521
  2. ACICLOVIR MYLAN [Suspect]
     Active Substance: ACYCLOVIR
     Indication: INFECTION
     Dosage: 1100MG 3/J, 1100MG 3/DAY?500 MG, POWDER FOR SOLUTION FOR INJECTION (IV)
     Route: 042
     Dates: start: 20210521, end: 20210523
  3. INSULIN [Concomitant]
     Active Substance: INSULIN NOS
     Indication: PRODUCT USED FOR UNKNOWN INDICATION
     Route: 065
  4. HYDROCORTISONE UPJOHN [Suspect]
     Active Substance: HYDROCORTISONE
     Indication: INFECTION
     Dosage: 50MG 4/J, 50MG 4/DAY ?100 MG, INJECTABLE PREPARATION
     Route: 042
     Dates: start: 20210521, end: 20210521
  5. FLUCORTAC [Suspect]
     Active Substance: FLUDROCORTISONE ACETATE
     Indication: INFECTION
     Dosage: 50 MICROGRAMS, SCORED TABLET, 50UG,QD
     Route: 048
     Dates: start: 20210521, end: 20210521
  6. FOSFOMYCIN [Suspect]
     Active Substance: FOSFOMYCIN
     Indication: INFECTION
     Dosage: 4G 3/J, 4G 3/DAY
     Route: 042
     Dates: start: 20210521, end: 20210523
  7. PARACETAMOL [Concomitant]
     Active Substance: ACETAMINOPHEN
     Indication: PRODUCT USED FOR UNKNOWN INDICATION
     Route: 065
  8. ROVAMYCINE [Suspect]
     Active Substance: SPIRAMYCIN
     Indication: INFECTION
     Dosage: 1.5 MUI 3/J, 1.5MIU 3/DAY?1.5 MILLION INTERNATIONAL UNITS, LYOPHILISATE FOR PARENTERAL USE
     Route: 042
     Dates: start: 20210521, end: 20210523
  9. MEROPENEM ARROW [Suspect]
     Active Substance: MEROPENEM
     Indication: INFECTION
     Dosage: 2G 3/J, 2G 3/DAY?1 G POWDER FOR SOLUTION FOR INJECTION/ FOR INFUSION
     Route: 042
     Dates: start: 20210521, end: 20210525
  10. PANTOPRAZOLE [Concomitant]
     Active Substance: PANTOPRAZOLE
     Indication: PRODUCT USED FOR UNKNOWN INDICATION
     Route: 065
  11. VITAMIN K1 [Suspect]
     Active Substance: PHYTONADIONE
     Indication: PRODUCT USED FOR UNKNOWN INDICATION
     Dosage: 10MG,QD
     Route: 042
     Dates: start: 20210521, end: 20210521
  12. METRONIDAZOLE BAXTER 0,5 POUR CENT, SOLUTION INJECTABLE EN POCHE [Suspect]
     Active Substance: METRONIDAZOLE
     Indication: INFECTION
     Dosage: 500MG 3/J
     Route: 042
     Dates: start: 20210521, end: 20210523
  13. FUMAFER [Concomitant]
     Active Substance: FERROUS FUMARATE
     Indication: PRODUCT USED FOR UNKNOWN INDICATION
     Route: 065
  14. LEVOTHYROX [Concomitant]
     Active Substance: LEVOTHYROXINE
     Indication: PRODUCT USED FOR UNKNOWN INDICATION
     Route: 065

REACTIONS (1)
  - Epileptic encephalopathy [Recovered/Resolved]

NARRATIVE: CASE EVENT DATE: 20210522
